FAERS Safety Report 23305057 (Version 1)
Quarter: 2023Q4

REPORT INFORMATION
  Report Type: Spontaneous
  Country: US (occurrence: None)
  Receive Date: 20231218
  Receipt Date: 20231218
  Transmission Date: 20240110
  Serious: No
  Sender: FDA-Public Use
  Company Number: 2023A281078

PATIENT
  Age: 25551 Day
  Sex: Female

DRUGS (2)
  1. BYDUREON BCISE [Suspect]
     Active Substance: EXENATIDE
     Route: 058
  2. BYDUREON BCISE [Suspect]
     Active Substance: EXENATIDE
     Route: 058
     Dates: start: 202311

REACTIONS (4)
  - Paraesthesia oral [Unknown]
  - Injection site haemorrhage [Unknown]
  - Incorrect dose administered by product [Unknown]
  - Device leakage [Unknown]

NARRATIVE: CASE EVENT DATE: 20231203
